FAERS Safety Report 20896171 (Version 2)
Quarter: 2022Q2

REPORT INFORMATION
  Report Type: Report from Study
  Country: ES (occurrence: None)
  Receive Date: 20220531
  Receipt Date: 20220602
  Transmission Date: 20220721
  Serious: Yes (Other)
  Sender: FDA-Public Use
  Company Number: ES-Merck Healthcare KGaA-9325745

PATIENT
  Sex: Female

DRUGS (2)
  1. EUTHYROX [Suspect]
     Active Substance: LEVOTHYROXINE SODIUM
     Indication: Hypothyroidism
     Dosage: HALF TABLET OF 125 MG FROM MONDAY TO FRIDAY, 1 TABLET OF 75 MG ON SATURDAY AND SUNDAY
     Dates: start: 200907
  2. PHENOBARBITAL [Concomitant]
     Active Substance: PHENOBARBITAL
     Indication: Product used for unknown indication

REACTIONS (2)
  - Blindness [Not Recovered/Not Resolved]
  - Retinal detachment [Not Recovered/Not Resolved]
